FAERS Safety Report 5762397-X (Version None)
Quarter: 2008Q2

REPORT INFORMATION
  Report Type: 
  Country: None (occurrence: None)
  Receive Date: 20080527
  Receipt Date: 20080104
  Transmission Date: 20081010
  Serious: Yes (Other)
  Sender: FDA-Public Use
  Company Number: 253101

PATIENT
  Sex: Female

DRUGS (12)
  1. HERCEPTIN [Suspect]
     Indication: BREAST CANCER
     Dosage: Q3W, INTRAVENOUS
     Route: 042
     Dates: start: 20070901
  2. TAXOTERE [Concomitant]
  3. CARBOPLATIN [Concomitant]
  4. DECADRON [Concomitant]
  5. NEULASTA [Concomitant]
  6. ARANESP [Concomitant]
  7. PHENERGAN HCL [Concomitant]
  8. NORVASC [Concomitant]
  9. TOPROL-XL [Concomitant]
  10. ISOSORBIDE MONONITRATE [Concomitant]
  11. VYTORIN [Concomitant]
  12. NITROGLYCERIN [Concomitant]

REACTIONS (4)
  - DYSPNOEA [None]
  - OEDEMA PERIPHERAL [None]
  - TACHYCARDIA [None]
  - WHITE BLOOD CELL COUNT DECREASED [None]
